FAERS Safety Report 24754512 (Version 1)
Quarter: 2024Q4

REPORT INFORMATION
  Report Type: Report from Study
  Country: US (occurrence: US)
  Receive Date: 20241219
  Receipt Date: 20241219
  Transmission Date: 20250115
  Serious: Yes (Other)
  Sender: ABBVIE
  Company Number: US-ABBVIE-6049720

PATIENT
  Age: 44 Year
  Sex: Female

DRUGS (1)
  1. SKYRIZI [Suspect]
     Active Substance: RISANKIZUMAB-RZAA
     Indication: Psoriasis
     Route: 058

REACTIONS (6)
  - Pituitary tumour [Unknown]
  - Skin disorder [Unknown]
  - Eczema [Unknown]
  - Hidradenitis [Unknown]
  - Device breakage [Unknown]
  - Tendonitis [Unknown]

NARRATIVE: CASE EVENT DATE: 20240101
